FAERS Safety Report 22662018 (Version 4)
Quarter: 2025Q3

REPORT INFORMATION
  Report Type: Spontaneous
  Country: GB (occurrence: GB)
  Receive Date: 20230630
  Receipt Date: 20250826
  Transmission Date: 20251020
  Serious: Yes (Other)
  Sender: MERCK SHARP & DOHME LLC
  Company Number: None

PATIENT
  Age: 0 Year
  Weight: 2.45 kg

DRUGS (14)
  1. EFAVIRENZ [Suspect]
     Active Substance: EFAVIRENZ
     Route: 064
     Dates: start: 20100922
  2. EFAVIRENZ [Suspect]
     Active Substance: EFAVIRENZ
     Route: 064
  3. EFAVIRENZ [Suspect]
     Active Substance: EFAVIRENZ
     Route: 064
     Dates: start: 20100112
  4. EFAVIRENZ [Suspect]
     Active Substance: EFAVIRENZ
     Dosage: MATERNAL DOSE: 600 MG QD
     Route: 064
  5. ISENTRESS [Suspect]
     Active Substance: RALTEGRAVIR POTASSIUM
     Indication: Foetal exposure during pregnancy
     Dosage: DOSE DESCRIPTION : 800 MILLIGRAM, QD?DAILY DOSE : 800 MILLIGRAM
     Route: 064
     Dates: start: 20101201
  6. ISENTRESS [Suspect]
     Active Substance: RALTEGRAVIR POTASSIUM
     Indication: Foetal exposure during pregnancy
     Dosage: 1 OT, QD
     Route: 064
  7. ISENTRESS [Suspect]
     Active Substance: RALTEGRAVIR POTASSIUM
     Indication: Foetal exposure during pregnancy
     Dosage: UNK ( MATERNAL DOSE 1 DF, QD)
     Route: 064
  8. LOPINAVIR\RITONAVIR [Suspect]
     Active Substance: LOPINAVIR\RITONAVIR
     Indication: Foetal exposure during pregnancy
     Dosage: 1 OT, QD
     Route: 064
  9. LOPINAVIR\RITONAVIR [Suspect]
     Active Substance: LOPINAVIR\RITONAVIR
     Indication: Foetal exposure during pregnancy
     Dosage: DOSE DESCRIPTION : 4 MILLIGRAM, QD?DAILY DOSE : 4 MILLIGRAM
     Route: 064
     Dates: start: 20100630
  10. EMTRICITABINE\TENOFOVIR DISOPROXIL FUMARATE [Suspect]
     Active Substance: EMTRICITABINE\TENOFOVIR DISOPROXIL FUMARATE
     Indication: Foetal exposure during pregnancy
     Dosage: DOSE DESCRIPTION : 1 OT QD
     Route: 064
     Dates: start: 20100112
  11. EMTRICITABINE\TENOFOVIR DISOPROXIL FUMARATE [Suspect]
     Active Substance: EMTRICITABINE\TENOFOVIR DISOPROXIL FUMARATE
     Indication: Foetal exposure during pregnancy
     Dosage: DOSE DESCRIPTION : 1 OT QD
     Route: 064
  12. ISENTRESS [Suspect]
     Active Substance: RALTEGRAVIR POTASSIUM
     Route: 064
  13. TENOFOVIR DISOPROXIL FUMARATE [Suspect]
     Active Substance: TENOFOVIR DISOPROXIL FUMARATE
     Indication: Foetal exposure during pregnancy
     Dosage: DOSE DESCRIPTION : 1 MILLIGRAM, QD?DAILY DOSE : 1 MILLIGRAM
     Route: 064
     Dates: start: 20100630
  14. EMTRICITABINE [Suspect]
     Active Substance: EMTRICITABINE
     Indication: Foetal exposure during pregnancy
     Route: 064

REACTIONS (2)
  - Low birth weight baby [Recovered/Resolved]
  - Foetal exposure during pregnancy [Unknown]

NARRATIVE: CASE EVENT DATE: 20100112
